FAERS Safety Report 10027183 (Version 1)
Quarter: 2014Q1

REPORT INFORMATION
  Report Type: Spontaneous
  Country: US (occurrence: US)
  Receive Date: 20140321
  Receipt Date: 20140321
  Transmission Date: 20141002
  Serious: No
  Sender: FDA-Public Use
  Company Number: US-MYLANLABS-2014S1002362

PATIENT
  Age: 61 Year
  Sex: Female

DRUGS (5)
  1. ESTRADIOL TRANSDERMAL SYSTEM, USP [Suspect]
     Indication: HORMONE REPLACEMENT THERAPY
     Dosage: CHANGED WEEKLY
     Route: 062
     Dates: start: 2012, end: 201401
  2. SIMVASTATIN [Concomitant]
  3. ACTOS [Concomitant]
  4. MOBIC [Concomitant]
  5. CELEXA [Concomitant]

REACTIONS (1)
  - Application site rash [Not Recovered/Not Resolved]
